FAERS Safety Report 9786685 (Version 1)
Quarter: 2013Q4

REPORT INFORMATION
  Report Type: Report from Study
  Country: US (occurrence: US)
  Receive Date: 20131227
  Receipt Date: 20131227
  Transmission Date: 20140711
  Serious: Yes (Other)
  Sender: FDA-Public Use
  Company Number: US-ABBVIE-13P-163-1181230-00

PATIENT
  Age: 61 Year
  Sex: Female
  Weight: 90.8 kg

DRUGS (9)
  1. HUMIRA [Suspect]
     Indication: RHEUMATOID ARTHRITIS
     Dates: start: 2012, end: 201306
  2. HUMIRA [Suspect]
     Dates: start: 2013
  3. PLAQUENIL [Concomitant]
     Indication: RHEUMATOID ARTHRITIS
  4. SAVELLA [Concomitant]
     Indication: FIBROMYALGIA
  5. MOBIC [Concomitant]
     Indication: RHEUMATOID ARTHRITIS
  6. MOBIC [Concomitant]
     Indication: OSTEOARTHRITIS
  7. MOBIC [Concomitant]
     Indication: FIBROMYALGIA
  8. AMITRIPYLINE [Concomitant]
     Indication: PRODUCT USED FOR UNKNOWN INDICATION
  9. VITAMINS [Concomitant]
     Indication: VITAMIN SUPPLEMENTATION

REACTIONS (5)
  - Bone erosion [Recovered/Resolved]
  - Fall [Recovered/Resolved]
  - Bone marrow oedema [Not Recovered/Not Resolved]
  - Osteoarthritis [Not Recovered/Not Resolved]
  - Herpes zoster [Recovered/Resolved]
